FAERS Safety Report 7187170-X (Version None)
Quarter: 2010Q4

REPORT INFORMATION
  Report Type: 
  Country: None (occurrence: None)
  Receive Date: 20101222
  Receipt Date: 20101220
  Transmission Date: 20110411
  Serious: Yes (Hospitalization)
  Sender: FDA-Public Use
  Company Number: US-PFIZER INC-2010175600

PATIENT
  Sex: Female

DRUGS (1)
  1. OMNICEF [Suspect]
     Indication: URINARY TRACT INFECTION
     Dosage: 300 MG, 2X/DAY
     Route: 065
     Dates: start: 20101123, end: 20101128

REACTIONS (3)
  - ABDOMINAL PAIN LOWER [None]
  - FLANK PAIN [None]
  - NAUSEA [None]
